FAERS Safety Report 7588747-X (Version None)
Quarter: 2011Q3

REPORT INFORMATION
  Report Type: 
  Country: None (occurrence: None)
  Receive Date: 20110705
  Receipt Date: 20110624
  Transmission Date: 20111222
  Serious: Yes (Hospitalization)
  Sender: FDA-Public Use
  Company Number: FR-ASTELLAS-2011EU004185

PATIENT
  Age: 59 Year
  Sex: Female

DRUGS (7)
  1. PROGRAF [Suspect]
     Dosage: 4 MG/DAY, UNKNOWN/D
     Route: 048
     Dates: start: 20090801, end: 20100215
  2. ASPEGIC 325 [Concomitant]
     Dosage: UNK
     Route: 065
  3. HYDROCORTISONE [Concomitant]
     Dosage: UNK
     Route: 065
  4. CACIT D3 [Concomitant]
     Route: 065
  5. NEXIUM [Concomitant]
     Dosage: UNK
     Route: 065
  6. CELLCEPT [Concomitant]
     Dosage: UNK MG, UNKNOWN/D
     Route: 065
  7. LANTUS [Concomitant]
     Dosage: UNK
     Route: 065

REACTIONS (5)
  - GAIT DISTURBANCE [None]
  - TREMOR [None]
  - ASTHENIA [None]
  - BEDRIDDEN [None]
  - MUSCULAR WEAKNESS [None]
